FAERS Safety Report 8968384 (Version 1)
Quarter: 2012Q4

REPORT INFORMATION
  Report Type: 
  Country: NL (occurrence: NL)
  Receive Date: 20121217
  Receipt Date: 20121217
  Transmission Date: 20130627
  Serious: Yes (Life-Threatening, Hospitalization)
  Sender: FDA-Public Use
  Company Number: NL-ASTRAZENECA-2012SE93655

PATIENT
  Age: 74 Year
  Sex: Female
  Weight: 73 kg

DRUGS (4)
  1. LISINOPRIL [Suspect]
     Indication: HYPERTENSION
     Route: 048
  2. LISINOPRIL [Interacting]
     Indication: HYPERTENSION
     Route: 048
     Dates: start: 2012, end: 20121210
  3. SUTENT [Interacting]
     Indication: METASTASES TO LIVER
     Route: 048
     Dates: start: 2012, end: 20121210
  4. AMLODIPINE BESILATE [Concomitant]
     Route: 048
     Dates: start: 2011

REACTIONS (3)
  - Drug interaction [Unknown]
  - Anaphylactic reaction [Recovering/Resolving]
  - Angioedema [Recovering/Resolving]
